FAERS Safety Report 9408899 (Version 4)
Quarter: 2013Q4

REPORT INFORMATION
  Report Type: Spontaneous
  Country: PT (occurrence: PT)
  Receive Date: 20130719
  Receipt Date: 20131025
  Transmission Date: 20140711
  Serious: Yes (Death, Hospitalization, Other)
  Sender: FDA-Public Use
  Company Number: PT-MERCK-1307PRT008477

PATIENT
  Age: 69 Year
  Sex: Female
  Weight: 52 kg

DRUGS (10)
  1. TEMODAL [Suspect]
     Indication: GLIOBLASTOMA
     Dosage: 110 MG, QD
     Route: 048
     Dates: start: 20130218, end: 20130325
  2. SULFAMETHOXAZOLE (+) TRIMETHOPRIM [Suspect]
     Indication: ANTIFUNGAL PROPHYLAXIS
     Route: 048
     Dates: start: 20130218, end: 20130328
  3. DEXAMETHASONE [Concomitant]
     Indication: GLIOBLASTOMA
     Route: 048
     Dates: start: 20130121, end: 20130628
  4. LEVETIRACETAM [Concomitant]
     Indication: EPILEPSY
     Route: 048
     Dates: start: 20130121, end: 20130628
  5. FUROSEMIDE [Concomitant]
     Indication: ESSENTIAL HYPERTENSION
     Route: 048
     Dates: start: 20130121, end: 20130327
  6. FLUCONAZOLE [Concomitant]
     Indication: STOMATITIS
     Route: 048
     Dates: start: 20130318, end: 20130325
  7. OMEPRAZOLE [Concomitant]
     Indication: PROPHYLAXIS AGAINST GASTROINTESTINAL ULCER
     Route: 048
     Dates: end: 20130325
  8. ENALAPRIL MALEATE [Concomitant]
     Indication: ESSENTIAL HYPERTENSION
     Route: 048
     Dates: start: 20130305, end: 20130325
  9. BISOPROLOL [Concomitant]
     Indication: ESSENTIAL HYPERTENSION
     Route: 048
     Dates: end: 20130328
  10. LACTULOSE [Concomitant]
     Indication: CONSTIPATION
     Dosage: 15 ML, PRN
     Route: 048
     Dates: start: 20130304, end: 20130628

REACTIONS (9)
  - Bone marrow failure [Fatal]
  - Pneumonia [Fatal]
  - Leukopenia [Fatal]
  - Thrombocytopenia [Fatal]
  - Sepsis [Fatal]
  - Disease progression [Fatal]
  - Respiratory tract infection [Fatal]
  - C-reactive protein increased [Unknown]
  - Platelet transfusion [Unknown]
